FAERS Safety Report 26099890 (Version 1)
Quarter: 2025Q4

REPORT INFORMATION
  Report Type: Spontaneous
  Country: US (occurrence: US)
  Receive Date: 20251128
  Receipt Date: 20251128
  Transmission Date: 20260117
  Serious: No
  Sender: CIPLA
  Company Number: US-CIPLA LTD.-2025US14747

PATIENT

DRUGS (2)
  1. ALBUTEROL [Suspect]
     Active Substance: ALBUTEROL
     Indication: Product used for unknown indication
     Dosage: 180 MICROGRAM, PRN (2 PUFFS EVERY 6 HOURS AS NEEDED) (MOUTH)
  2. ALBUTEROL [Suspect]
     Active Substance: ALBUTEROL
     Dosage: 180 MICROGRAM, PRN (2 PUFFS EVERY 6 HOURS AS NEEDED) (MOUTH)
     Dates: start: 20251114, end: 20251115

REACTIONS (2)
  - Incorrect dose administered by device [Unknown]
  - Device delivery system issue [Unknown]

NARRATIVE: CASE EVENT DATE: 20251114
